FAERS Safety Report 5831873-3 (Version None)
Quarter: 2008Q3

REPORT INFORMATION
  Report Type: 
  Country: None (occurrence: None)
  Receive Date: 20080804
  Receipt Date: 20080725
  Transmission Date: 20090109
  Serious: Yes (Hospitalization)
  Sender: FDA-Public Use
  Company Number: US-AMGEN-US297397

PATIENT
  Sex: Female

DRUGS (12)
  1. ENBREL [Suspect]
     Indication: RHEUMATOID ARTHRITIS
     Route: 058
  2. ARAVA [Suspect]
     Route: 048
     Dates: start: 20071201
  3. HUMIRA [Suspect]
     Route: 058
     Dates: start: 20031106
  4. PREDNISONE [Concomitant]
     Route: 065
     Dates: start: 20010215
  5. LOPRESSOR [Concomitant]
     Route: 065
  6. LASIX [Concomitant]
     Route: 065
  7. GLUCOVANCE [Concomitant]
     Route: 065
  8. ZETIA [Concomitant]
     Route: 065
  9. ZOCOR [Concomitant]
     Route: 065
  10. COUMADIN [Concomitant]
     Route: 065
  11. SYNTHROID [Concomitant]
     Route: 065
  12. ACTOS [Concomitant]
     Route: 065

REACTIONS (2)
  - DEHYDRATION [None]
  - HYPERGLYCAEMIA [None]
